FAERS Safety Report 7275255-9 (Version None)
Quarter: 2011Q1

REPORT INFORMATION
  Report Type: 
  Country: None (occurrence: None)
  Receive Date: 20110204
  Receipt Date: 20110128
  Transmission Date: 20110831
  Serious: Yes (Other)
  Sender: FDA-Public Use
  Company Number: BR-PFIZER INC-2011020706

PATIENT
  Sex: Female

DRUGS (4)
  1. DEPO-PROVERA [Suspect]
     Indication: MENSTRUAL DISCOMFORT
  2. RIVOTRIL [Concomitant]
     Indication: SLEEP DISORDER
     Dosage: 8 DROPS, UNKNOWN FREQUENCY
  3. DEPO-PROVERA [Suspect]
     Indication: OFF LABEL USE
     Dosage: 150 MG, EVERY 3 MONTHS
     Route: 030
     Dates: start: 19980101, end: 20070101
  4. DEPO-PROVERA [Suspect]
     Indication: DYSMENORRHOEA

REACTIONS (5)
  - OSTEOPENIA [None]
  - MENOMETRORRHAGIA [None]
  - FLUID RETENTION [None]
  - ENDOMETRIOSIS [None]
  - ADENOMYOSIS [None]
